FAERS Safety Report 4333631-8 (Version None)
Quarter: 2004Q2

REPORT INFORMATION
  Report Type: 
  Country: None (occurrence: None)
  Receive Date: 20040405
  Receipt Date: 20040405
  Transmission Date: 20050107
  Serious: No
  Sender: FDA-Public Use
  Company Number: None

PATIENT
  Sex: Female

DRUGS (2)
  1. ZYPREXA [Suspect]
     Dosage: 5 MG DAILY
     Dates: start: 20040205, end: 20040330
  2. DILANTIN [Suspect]
     Dosage: 300 MG DAILY AT BEDTIME
     Dates: start: 20040301

REACTIONS (1)
  - CONVULSION [None]
